FAERS Safety Report 15546857 (Version 1)
Quarter: 2018Q4

REPORT INFORMATION
  Report Type: Spontaneous
  Country: US (occurrence: US)
  Receive Date: 20181024
  Receipt Date: 20181024
  Transmission Date: 20190205
  Serious: Yes (Death)
  Sender: FDA-Public Use
  Company Number: None

PATIENT
  Age: 69 Year
  Sex: Female
  Weight: 77.9 kg

DRUGS (1)
  1. VERZENIO [Suspect]
     Active Substance: ABEMACICLIB
     Indication: BREAST CANCER METASTATIC
     Route: 048

REACTIONS (5)
  - Interstitial lung disease [None]
  - Fibrosis [None]
  - Acute kidney injury [None]
  - Lymphopenia [None]
  - Bone marrow failure [None]

NARRATIVE: CASE EVENT DATE: 20180913
